FAERS Safety Report 14563603 (Version 1)
Quarter: 2018Q1

REPORT INFORMATION
  Report Type: Spontaneous
  Country: US (occurrence: US)
  Receive Date: 20180222
  Receipt Date: 20180222
  Transmission Date: 20180509
  Serious: Yes (Hospitalization, Other)
  Sender: FDA-Public Use
  Company Number: US-DSJP-DSU-2017-142557AA

PATIENT

DRUGS (4)
  1. BENICAR HCT [Suspect]
     Active Substance: HYDROCHLOROTHIAZIDE\OLMESARTAN MEDOXOMIL
     Indication: HYPERTENSION
     Dosage: 40/25 MG, QD
     Route: 048
  2. BENICAR [Suspect]
     Active Substance: OLMESARTAN MEDOXOMIL
     Indication: PRODUCT USED FOR UNKNOWN INDICATION
     Dosage: 20 MG, QD
     Dates: start: 20070226
  3. BENICAR HCT [Suspect]
     Active Substance: HYDROCHLOROTHIAZIDE\OLMESARTAN MEDOXOMIL
     Dosage: 40/12.5 MG, QD
     Route: 048
  4. BENICAR [Suspect]
     Active Substance: OLMESARTAN MEDOXOMIL
     Dosage: 40 MG, UNK
     Route: 048

REACTIONS (5)
  - Haemorrhoids [Unknown]
  - Sprue-like enteropathy [Not Recovered/Not Resolved]
  - Cholelithiasis [Recovered/Resolved]
  - Abdominal adhesions [Not Recovered/Not Resolved]
  - Diverticulum [Unknown]

NARRATIVE: CASE EVENT DATE: 2009
